FAERS Safety Report 9022117 (Version 3)
Quarter: 2013Q2

REPORT INFORMATION
  Report Type: Spontaneous
  Country: US (occurrence: US)
  Receive Date: 20130118
  Receipt Date: 20130509
  Transmission Date: 20140414
  Serious: Yes (Other)
  Sender: FDA-Public Use
  Company Number: US-AMGEN-USASP2013001692

PATIENT
  Age: 65 Year
  Sex: Female
  Weight: 50 kg

DRUGS (3)
  1. SENSIPAR [Suspect]
     Indication: HYPERPARATHYROIDISM SECONDARY
     Dosage: 60-90 MG, QD
  2. ROCALTROL [Suspect]
     Dosage: UNK UNK, QD
  3. PURIM [Suspect]

REACTIONS (3)
  - Calciphylaxis [Recovering/Resolving]
  - Staphylococcus test positive [None]
  - Streptococcus test positive [None]
